FAERS Safety Report 7633254-9 (Version None)
Quarter: 2011Q3

REPORT INFORMATION
  Report Type: 
  Country: None (occurrence: None)
  Receive Date: 20110725
  Receipt Date: 20110714
  Transmission Date: 20111222
  Serious: Yes (Hospitalization)
  Sender: FDA-Public Use
  Company Number: US-ROCHE-789495

PATIENT
  Sex: Male
  Weight: 84.4 kg

DRUGS (3)
  1. OXALIPLATIN [Suspect]
     Dosage: STRENGTH: 100/50 MG.
     Route: 065
     Dates: start: 20110428, end: 20110616
  2. CAPECITABINE [Suspect]
     Route: 065
     Dates: start: 20110428, end: 20110616
  3. BEVACIZUMAB [Suspect]
     Route: 065
     Dates: start: 20110428, end: 20110616

REACTIONS (2)
  - DEHYDRATION [None]
  - HYPOXIA [None]
